FAERS Safety Report 13470319 (Version 1)
Quarter: 2017Q2

REPORT INFORMATION
  Report Type: Spontaneous
  Country: US (occurrence: US)
  Receive Date: 20170421
  Receipt Date: 20170421
  Transmission Date: 20170830
  Serious: No
  Sender: FDA-Public Use
  Company Number: None

PATIENT
  Age: 55 Year
  Sex: Female

DRUGS (1)
  1. OCALIVA [Suspect]
     Active Substance: OBETICHOLIC ACID
     Indication: LIVER DISORDER
     Route: 048
     Dates: start: 20170218

REACTIONS (5)
  - Abdominal discomfort [None]
  - Alopecia [None]
  - Pruritus [None]
  - Scratch [None]
  - Skin injury [None]

NARRATIVE: CASE EVENT DATE: 201704
